FAERS Safety Report 7405296-X (Version None)
Quarter: 2011Q2

REPORT INFORMATION
  Report Type: 
  Country: None (occurrence: None)
  Receive Date: 20110411
  Receipt Date: 20110328
  Transmission Date: 20111010
  Serious: Yes (Hospitalization)
  Sender: FDA-Public Use
  Company Number: PHFR2011GB02238

PATIENT
  Sex: Female

DRUGS (3)
  1. PARACETAMOL [Concomitant]
  2. CLOZARIL [Suspect]
     Dosage: UNK DF, UNK
     Route: 048
     Dates: start: 20110202
  3. ACETAMINOPHEN W/ CODEINE [Suspect]

REACTIONS (1)
  - INCORRECT DOSE ADMINISTERED [None]
